FAERS Safety Report 20183039 (Version 1)
Quarter: 2021Q4

REPORT INFORMATION
  Report Type: Spontaneous
  Country: DE (occurrence: DE)
  Receive Date: 20211214
  Receipt Date: 20211214
  Transmission Date: 20220304
  Serious: Yes (Hospitalization)
  Sender: FDA-Public Use
  Company Number: DE-DCGMA-21187722

PATIENT
  Age: 15 Year
  Sex: Female
  Weight: 47 kg

DRUGS (7)
  1. SERTRALINE HYDROCHLORIDE [Suspect]
     Active Substance: SERTRALINE HYDROCHLORIDE
     Indication: Anorexia nervosa
     Dosage: 100 MG (2 TABLETS (100-0-0))
     Route: 048
  2. SERTRALINE HYDROCHLORIDE [Suspect]
     Active Substance: SERTRALINE HYDROCHLORIDE
     Dosage: 100 MG (4 TABLETS)
     Route: 048
     Dates: start: 20200827, end: 20200827
  3. ARIPIPRAZOLE [Suspect]
     Active Substance: ARIPIPRAZOLE
     Indication: Anorexia nervosa
     Dosage: 10 MG (1 TABLET 0-0-10)
  4. ARIPIPRAZOLE [Suspect]
     Active Substance: ARIPIPRAZOLE
     Dosage: 10 MG (3 TABLET 10 MG)
     Dates: start: 20210827, end: 20210827
  5. SULTHIAME [Suspect]
     Active Substance: SULTHIAME
     Dosage: UNCLEAR NUMBER OF TABLETS
     Route: 048
     Dates: start: 20200827, end: 20200827
  6. VITAMIN D NOS [Concomitant]
     Active Substance: VITAMIN D NOS
     Indication: Vitamin D deficiency
     Dosage: 1000 IU
     Route: 048
     Dates: start: 201911
  7. MIDAZOLAM HYDROCHLORIDE [Concomitant]
     Active Substance: MIDAZOLAM HYDROCHLORIDE
     Indication: Epilepsy
     Dosage: DAILY DOSE: 10 MG MILLGRAM(S) EVERY AS NECESSARY
     Dates: start: 20191129

REACTIONS (5)
  - Suicide attempt [Recovered/Resolved]
  - Suicidal ideation [Recovered/Resolved]
  - Dizziness [Recovered/Resolved]
  - Headache [Recovered/Resolved]
  - Off label use [Unknown]

NARRATIVE: CASE EVENT DATE: 20200827
